FAERS Safety Report 10047632 (Version 1)
Quarter: 2014Q1

REPORT INFORMATION
  Report Type: Spontaneous
  Country: US (occurrence: US)
  Receive Date: 20140331
  Receipt Date: 20140331
  Transmission Date: 20141002
  Serious: Yes (Other)
  Sender: FDA-Public Use
  Company Number: US-PFIZER INC-2014090390

PATIENT
  Age: 39 Year
  Sex: Female
  Weight: 58.96 kg

DRUGS (1)
  1. PRISTIQ [Suspect]
     Indication: DEPRESSION
     Dosage: 100 MG, 1X/DAY

REACTIONS (9)
  - Interstitial lung disease [Unknown]
  - Autoimmune thyroiditis [Unknown]
  - Hypothyroidism [Unknown]
  - Hypoglycaemia [Unknown]
  - Hypertension [Unknown]
  - Vitamin B12 deficiency [Unknown]
  - Vitamin D deficiency [Unknown]
  - Heart rate increased [Unknown]
  - Anxiety [Unknown]
